FAERS Safety Report 16930115 (Version 1)
Quarter: 2019Q4

REPORT INFORMATION
  Report Type: Spontaneous
  Country: US (occurrence: US)
  Receive Date: 20190826
  Receipt Date: 20190826
  Transmission Date: 20200122
  Serious: Yes (Hospitalization)
  Sender: FDA-Public Use
  Company Number: None

PATIENT
  Age: 60 Year
  Sex: Female

DRUGS (17)
  1. MORPHINE [Concomitant]
     Active Substance: MORPHINE
  2. LEVOTHRYINE [Concomitant]
  3. FUROSEMIDE. [Concomitant]
     Active Substance: FUROSEMIDE
  4. CLONAZEPAM. [Concomitant]
     Active Substance: CLONAZEPAM
  5. HUMIRA [Suspect]
     Active Substance: ADALIMUMAB
     Route: 058
  6. ARIPIPRAZOLE. [Concomitant]
     Active Substance: ARIPIPRAZOLE
  7. IPRATROPIUM [Concomitant]
     Active Substance: IPRATROPIUM
  8. HYDROXCHLOR [Concomitant]
  9. GABAPENTIN. [Concomitant]
     Active Substance: GABAPENTIN
  10. DEMETHYPHE [Concomitant]
  11. CLONDINE [Concomitant]
     Active Substance: CLONIDINE
  12. OMEPRAZOLE. [Concomitant]
     Active Substance: OMEPRAZOLE
  13. LITHIUM. [Concomitant]
     Active Substance: LITHIUM
  14. PREDNISONE. [Concomitant]
     Active Substance: PREDNISONE
  15. POT CHLORIDE [Concomitant]
     Active Substance: POTASSIUM CHLORIDE
  16. LORAZEPAM. [Concomitant]
     Active Substance: LORAZEPAM
  17. LEFLUNOMIDE. [Concomitant]
     Active Substance: LEFLUNOMIDE

REACTIONS (3)
  - Cardiac failure [None]
  - Skin discolouration [None]
  - Mouth ulceration [None]

NARRATIVE: CASE EVENT DATE: 20190723
